FAERS Safety Report 6736408-9 (Version None)
Quarter: 2010Q2

REPORT INFORMATION
  Report Type: 
  Country: None (occurrence: None)
  Receive Date: 20100521
  Receipt Date: 20100514
  Transmission Date: 20101027
  Serious: Yes (Life-Threatening, Hospitalization)
  Sender: FDA-Public Use
  Company Number: JP-MERCK-1004USA04388

PATIENT
  Age: 81 Year
  Sex: Female
  Weight: 46 kg

DRUGS (9)
  1. JANUVIA [Suspect]
     Route: 048
     Dates: start: 20100226, end: 20100304
  2. LACTOMIN [Concomitant]
     Indication: DIARRHOEA
     Route: 048
  3. RIMATIL [Concomitant]
     Indication: RHEUMATOID ARTHRITIS
     Route: 048
  4. RIZE [Concomitant]
     Indication: DEPRESSION
     Route: 048
  5. VOLTAREN [Concomitant]
     Indication: PAIN
     Route: 048
  6. DOGMATYL [Concomitant]
     Indication: DEPRESSION
     Route: 048
  7. HUMULIN R [Concomitant]
     Indication: BLOOD GLUCOSE ABNORMAL
     Route: 058
     Dates: start: 20100215, end: 20100225
  8. LASOPRAN [Concomitant]
     Indication: GASTRITIS
     Route: 048
  9. MUCOSTA [Concomitant]
     Indication: GASTRITIS
     Route: 048

REACTIONS (1)
  - HYPOGLYCAEMIA [None]
